FAERS Safety Report 19481120 (Version 1)
Quarter: 2021Q2

REPORT INFORMATION
  Report Type: Other
  Country: TH (occurrence: TH)
  Receive Date: 20210630
  Receipt Date: 20210630
  Transmission Date: 20210717
  Serious: Yes (Hospitalization, Other)
  Sender: FDA-Public Use
  Company Number: TH-SQUARE-000021

PATIENT
  Age: 78 Year
  Sex: Male

DRUGS (6)
  1. MOXIFLOXACIN. [Concomitant]
     Active Substance: MOXIFLOXACIN
     Indication: PRODUCT USED FOR UNKNOWN INDICATION
     Dosage: 0.5% EYE DROPS, FOUR TIMES DAILY
     Route: 047
  2. ACICLOVIR [Suspect]
     Active Substance: ACYCLOVIR
     Indication: OPHTHALMIC HERPES SIMPLEX
     Dosage: 400 MG 2 TIMES DAILY
     Route: 048
  3. ACICLOVIR [Suspect]
     Active Substance: ACYCLOVIR
     Indication: OPHTHALMIC HERPES SIMPLEX
     Dosage: 400 MG 5 TIMES A DAY
     Route: 048
  4. GENTAMICIN. [Concomitant]
     Active Substance: GENTAMICIN
     Indication: BACTERIAL INFECTION
     Dosage: 1.4%, TOPICAL
     Route: 061
  5. ACICLOVIR [Suspect]
     Active Substance: ACYCLOVIR
     Indication: OPHTHALMIC HERPES SIMPLEX
     Dosage: 400 MG FIVE TIMES DAILY
     Route: 048
  6. CEFAZOLIN [Concomitant]
     Active Substance: CEFAZOLIN
     Indication: PRODUCT USED FOR UNKNOWN INDICATION
     Dosage: 5% EVERY HOUR UNTIL MIDNIGHT

REACTIONS (4)
  - Drug ineffective [Unknown]
  - Ulcerative keratitis [Recovered/Resolved]
  - Ophthalmic herpes simplex [Recovered/Resolved]
  - Disease recurrence [Recovered/Resolved]
